FAERS Safety Report 9436964 (Version 2)
Quarter: 2013Q3

REPORT INFORMATION
  Report Type: Report from Study
  Country: US (occurrence: US)
  Receive Date: 20130802
  Receipt Date: 20130827
  Transmission Date: 20140515
  Serious: Yes (Other)
  Sender: FDA-Public Use
  Company Number: US-BRISTOL-MYERS SQUIBB COMPANY-19148287

PATIENT
  Age: 50 Year
  Sex: Male
  Weight: 101 kg

DRUGS (2)
  1. IPILIMUMAB [Suspect]
     Indication: MALIGNANT MELANOMA
     Dosage: LAST ADMIN DT 31JAN13 1000MG?NO OF COURSES 4
     Route: 042
     Dates: start: 20121126
  2. PREDNISONE [Concomitant]

REACTIONS (1)
  - Blood testosterone decreased [Recovered/Resolved with Sequelae]
